FAERS Safety Report 8439419-0 (Version None)
Quarter: 2012Q2

REPORT INFORMATION
  Report Type: 
  Country: None (occurrence: None)
  Receive Date: 20120615
  Receipt Date: 20120611
  Transmission Date: 20120825
  Serious: Yes (Hospitalization)
  Sender: FDA-Public Use
  Company Number: FR-PFIZER INC-2012139728

PATIENT
  Age: 80 Year
  Sex: Female

DRUGS (9)
  1. NICARDIPINE HYDROCHLORIDE [Concomitant]
     Dosage: 1 DF, IN THE MORNING
  2. RABEPRAZOLE SODIUM [Concomitant]
     Dosage: 1 DF,IN THE EVENING
  3. PREDNISOLONE [Concomitant]
     Dosage: 20, 1DF IN THE MORNING
  4. SUTENT [Suspect]
     Indication: METASTATIC RENAL CELL CARCINOMA
     Dosage: 37.5 MG, 1X/DAY
     Dates: start: 20090226, end: 20090301
  5. FLECTOR [Concomitant]
     Dosage: 1 DF, 2X/DAY
  6. OROPERIDYS [Concomitant]
     Dosage: 1 DF, 3X/DAY IN THE MORNING, ON NOON AND IN THE EVENING
  7. TIMOLOL MALEATE [Concomitant]
     Dosage: 1 DF, IN EACH EYE IN THE MORNING AND IN THE EVENING
  8. ACETAMINOPHEN [Concomitant]
     Dosage: 500 MG, 3X/DAY
  9. PROCTOLOG [Concomitant]
     Dosage: 1 DF, IN THE MORNING AND THE EVENING

REACTIONS (27)
  - LUNG DISORDER [None]
  - CONFUSIONAL STATE [None]
  - WEIGHT DECREASED [None]
  - PALLOR [None]
  - GAMMA-GLUTAMYLTRANSFERASE INCREASED [None]
  - HEPATOMEGALY [None]
  - RASH PAPULAR [None]
  - MASS [None]
  - DRUG INTOLERANCE [None]
  - PAIN IN EXTREMITY [None]
  - CHOLESTASIS [None]
  - SKIN TOXICITY [None]
  - YELLOW SKIN [None]
  - THROMBOCYTOPENIA [None]
  - ASCITES [None]
  - WHITE BLOOD CELL COUNT DECREASED [None]
  - RASH PRURITIC [None]
  - FLANK PAIN [None]
  - CONJUNCTIVAL PALLOR [None]
  - INFLAMMATION [None]
  - LOBAR PNEUMONIA [None]
  - FUNGAL SKIN INFECTION [None]
  - GENERAL PHYSICAL HEALTH DETERIORATION [None]
  - HYPONATRAEMIA [None]
  - MICROCYTIC ANAEMIA [None]
  - BLOOD ALKALINE PHOSPHATASE INCREASED [None]
  - RASH ERYTHEMATOUS [None]
